FAERS Safety Report 19824274 (Version 4)
Quarter: 2023Q4

REPORT INFORMATION
  Report Type: Report from Study
  Country: KR (occurrence: KR)
  Receive Date: 20210913
  Receipt Date: 20231020
  Transmission Date: 20240109
  Serious: Yes (Hospitalization)
  Sender: FDA-Public Use
  Company Number: KR-ABBVIE-21K-090-4074425-00

PATIENT
  Age: 82 Year
  Sex: Male
  Weight: 62 kg

DRUGS (12)
  1. GLECAPREVIR\PIBRENTASVIR [Suspect]
     Active Substance: GLECAPREVIR\PIBRENTASVIR
     Indication: Chronic hepatitis C
     Dosage: 3 TABLET
     Route: 048
     Dates: start: 20210408, end: 20210603
  2. LASIX [Concomitant]
     Active Substance: FUROSEMIDE
     Indication: Atrial fibrillation
     Route: 048
     Dates: start: 20191118
  3. CONBLOC [Concomitant]
     Indication: Atrial fibrillation
     Dosage: 1 TABLET
     Route: 048
     Dates: start: 20200901
  4. WARFARIN [Concomitant]
     Active Substance: WARFARIN
     Indication: Atrial fibrillation
     Dosage: 0.5 TABLET
     Route: 048
     Dates: start: 20091219
  5. ATACAND [Concomitant]
     Active Substance: CANDESARTAN CILEXETIL
     Indication: Atrial fibrillation
     Dosage: ATACAND-8?1 TABLET
     Route: 048
     Dates: start: 20191118
  6. IMPACTAMIN POWER [Concomitant]
     Indication: Vitamin supplementation
     Route: 048
     Dates: start: 20200311
  7. GLIME M [Concomitant]
     Indication: Diabetes mellitus
     Dosage: GLIME M (1/250MG)
     Route: 048
     Dates: start: 20201124
  8. GUARDLET [Concomitant]
     Indication: Diabetes mellitus
     Route: 048
     Dates: start: 20200901
  9. PARAMEL [Concomitant]
     Indication: Prophylaxis
     Dosage: 1 TABLET
     Route: 048
     Dates: start: 20191018
  10. MAGNESIUM HYDROXIDE [Concomitant]
     Active Substance: MAGNESIUM HYDROXIDE
     Indication: Constipation
     Dosage: 500 MG?2 TABLET
     Route: 048
     Dates: start: 20210401
  11. URSODIOL [Concomitant]
     Active Substance: URSODIOL
     Indication: Prophylaxis
     Dosage: URSA-200?1 TABLET
     Route: 048
     Dates: start: 20120802
  12. DUPHALAC [Concomitant]
     Active Substance: LACTULOSE
     Indication: Prophylaxis
     Dosage: 1PACK
     Route: 048
     Dates: start: 20210401

REACTIONS (6)
  - Diabetic gastropathy [Recovered/Resolved]
  - Hypophagia [Unknown]
  - Vomiting [Unknown]
  - Oesophageal candidiasis [Unknown]
  - Nausea [Unknown]
  - Intentional product misuse [Unknown]

NARRATIVE: CASE EVENT DATE: 20210607
